FAERS Safety Report 6674077-7 (Version None)
Quarter: 2010Q2

REPORT INFORMATION
  Report Type: 
  Country: None (occurrence: None)
  Receive Date: 20100409
  Receipt Date: 20100405
  Transmission Date: 20101027
  Serious: Yes (Hospitalization)
  Sender: FDA-Public Use
  Company Number: AR-BRISTOL-MYERS SQUIBB COMPANY-15049166

PATIENT
  Age: 57 Year
  Sex: Male

DRUGS (3)
  1. ABATACEPT [Suspect]
     Indication: RHEUMATOID ARTHRITIS
     Route: 058
     Dates: start: 20100401
  2. METHOTREXATE [Suspect]
     Indication: RHEUMATOID ARTHRITIS
     Dates: start: 20050201, end: 20100331
  3. ENALAPRIL MALEATE [Concomitant]
     Dates: start: 20081027

REACTIONS (1)
  - PERFORMANCE STATUS DECREASED [None]
